FAERS Safety Report 8962568 (Version 1)
Quarter: 2012Q4

REPORT INFORMATION
  Report Type: 
  Country: IT (occurrence: IT)
  Receive Date: 20121213
  Receipt Date: 20121213
  Transmission Date: 20130627
  Serious: Yes (Hospitalization)
  Sender: FDA-Public Use
  Company Number: IT-B.I. PHARMACEUTICALS,INC./RIDGEFIELD-2012-IT-00396IT

PATIENT
  Age: 77 Year
  Sex: Male

DRUGS (10)
  1. CATAPRESAN [Suspect]
     Dosage: 150 mcg
     Route: 048
     Dates: start: 20120101, end: 20121204
  2. ANTRA [Concomitant]
  3. BROMAZEPAM ALMUS [Concomitant]
  4. CARDIOASPIRIN [Concomitant]
  5. LASIX [Concomitant]
  6. ZYLORIC [Concomitant]
  7. REPAGLINIDE DOC GENERICI [Concomitant]
  8. ROCALTROL [Concomitant]
  9. SIVASTIN [Concomitant]
  10. LORTAAN [Concomitant]

REACTIONS (6)
  - Atrioventricular block first degree [Recovered/Resolved]
  - Sinus bradycardia [Recovered/Resolved]
  - Asthenia [Recovered/Resolved]
  - Face oedema [Recovered/Resolved]
  - Tongue oedema [Recovered/Resolved]
  - Feeling cold [Recovered/Resolved]
